FAERS Safety Report 4483921-3 (Version None)
Quarter: 2004Q4

REPORT INFORMATION
  Report Type: 
  Country: None (occurrence: None)
  Receive Date: 20041025
  Receipt Date: 20041018
  Transmission Date: 20050328
  Serious: Yes (Death)
  Sender: FDA-Public Use
  Company Number: PHFR2004GB03865

PATIENT
  Age: 80 Year
  Sex: Male
  Weight: 71 kg

DRUGS (2)
  1. NEORAL [Suspect]
     Dosage: 225 MG/DAY
     Route: 048
     Dates: start: 19980730
  2. AZATHIOPRINE [Concomitant]
     Indication: IMMUNOSUPPRESSION
     Dosage: 75 MG/DAY
     Route: 048
     Dates: start: 19980730, end: 20040202

REACTIONS (4)
  - ADENOCARCINOMA [None]
  - BLADDER MASS [None]
  - LYMPHOMA [None]
  - TRANSITIONAL CELL CARCINOMA [None]
